FAERS Safety Report 21806810 (Version 1)
Quarter: 2023Q1

REPORT INFORMATION
  Report Type: Spontaneous
  Country: GB (occurrence: GB)
  Receive Date: 20230102
  Receipt Date: 20230102
  Transmission Date: 20230418
  Serious: Yes (Life-Threatening, Other)
  Sender: FDA-Public Use
  Company Number: None

PATIENT
  Age: 41 Year
  Sex: Female

DRUGS (3)
  1. HYDROCORTISONE BUTYRATE [Suspect]
     Active Substance: HYDROCORTISONE BUTYRATE
     Indication: Product used for unknown indication
     Route: 065
  2. NIVOLUMAB [Suspect]
     Active Substance: NIVOLUMAB
     Indication: Colorectal cancer
     Route: 065
     Dates: start: 20210223, end: 20210223
  3. ACETAMINOPHEN [Concomitant]
     Active Substance: ACETAMINOPHEN
     Indication: Product used for unknown indication
     Dosage: PRE MEDICATION

REACTIONS (9)
  - Chest pain [Unknown]
  - Back pain [Unknown]
  - Chest discomfort [Unknown]
  - Dyspnoea [Recovered/Resolved]
  - Intestinal obstruction [Unknown]
  - Septic shock [Unknown]
  - Necrotising fasciitis [Unknown]
  - Impaired healing [Unknown]
  - Wound dehiscence [Unknown]

NARRATIVE: CASE EVENT DATE: 20210223
